FAERS Safety Report 18376090 (Version 1)
Quarter: 2020Q4

REPORT INFORMATION
  Report Type: Spontaneous
  Country: US (occurrence: US)
  Receive Date: 20201010
  Receipt Date: 20201010
  Transmission Date: 20210114
  Serious: Yes (Other)
  Sender: FDA-Public Use
  Company Number: None

PATIENT
  Age: 55 Year
  Sex: Female
  Weight: 72 kg

DRUGS (5)
  1. FLOXIN [Suspect]
     Active Substance: OFLOXACIN
     Indication: PRODUCT USED FOR UNKNOWN INDICATION
     Dosage: ?          QUANTITY:6 INJECTION(S);OTHER FREQUENCY:IV DRIP; 200 ML IV DRIP ?
     Route: 042
     Dates: start: 20201005, end: 20201006
  2. MAGNESIUM 250 MG [Concomitant]
  3. FLONASE [Concomitant]
     Active Substance: FLUTICASONE PROPIONATE
  4. CIPRO [Suspect]
     Active Substance: CIPROFLOXACIN HYDROCHLORIDE
     Indication: PRODUCT USED FOR UNKNOWN INDICATION
     Dosage: ?          QUANTITY:1 INJECTION(S);OTHER FREQUENCY:1 HOUR;?
     Route: 042
     Dates: start: 20201006, end: 20201006
  5. CENTRUM SILVER [Concomitant]
     Active Substance: MINERALS\VITAMINS

REACTIONS (12)
  - Muscle spasms [None]
  - Headache [None]
  - Back pain [None]
  - Neck pain [None]
  - Eye disorder [None]
  - Temporomandibular joint syndrome [None]
  - Tendon disorder [None]
  - Arthralgia [None]
  - Oral disorder [None]
  - Pain in extremity [None]
  - Pharyngeal swelling [None]
  - Tendon pain [None]

NARRATIVE: CASE EVENT DATE: 20201006
